APPROVED DRUG PRODUCT: VISKEN
Active Ingredient: PINDOLOL
Strength: 10MG **Federal Register determination that product was not discontinued or withdrawn for safety or effectiveness reasons**
Dosage Form/Route: TABLET;ORAL
Application: N018285 | Product #002
Applicant: NOVARTIS PHARMACEUTICALS CORP
Approved: Sep 3, 1982 | RLD: Yes | RS: No | Type: DISCN